FAERS Safety Report 7545036-7 (Version None)
Quarter: 2011Q2

REPORT INFORMATION
  Report Type: 
  Country: None (occurrence: None)
  Receive Date: 20110614
  Receipt Date: 20100210
  Transmission Date: 20111010
  Serious: No
  Sender: FDA-Public Use
  Company Number: US-BAYER-201014656NA

PATIENT
  Age: 37 Year
  Sex: Female
  Weight: 61.224 kg

DRUGS (1)
  1. MIRENA [Suspect]
     Indication: CONTRACEPTION
     Dosage: 20 ?G/D, QD
     Route: 015
     Dates: start: 20100122

REACTIONS (2)
  - NAUSEA [None]
  - ABDOMINAL PAIN LOWER [None]
